FAERS Safety Report 8603070-X (Version None)
Quarter: 2012Q3

REPORT INFORMATION
  Report Type: 
  Country: None (occurrence: None)
  Receive Date: 20120817
  Receipt Date: 20120718
  Transmission Date: 20120928
  Serious: No
  Sender: FDA-Public Use
  Company Number: US-GLAXOSMITHKLINE-A0986992A

PATIENT
  Age: 48 Year
  Sex: Male

DRUGS (7)
  1. ATIVAN [Concomitant]
  2. LISINOPRIL [Concomitant]
     Indication: HYPERTENSION
  3. SOMA [Concomitant]
  4. NORVASC [Concomitant]
     Indication: HYPERTENSION
  5. VOTRIENT [Suspect]
     Indication: MALIGNANT SOFT TISSUE NEOPLASM
     Dosage: 800MG PER DAY
     Route: 048
  6. OXYCODONE HCL [Concomitant]
  7. DILAUDID [Concomitant]

REACTIONS (6)
  - DECREASED APPETITE [None]
  - DIARRHOEA [None]
  - INTERVERTEBRAL DISC PROTRUSION [None]
  - COUGH [None]
  - WEIGHT DECREASED [None]
  - UPPER RESPIRATORY TRACT INFECTION [None]
